FAERS Safety Report 5133931-8 (Version None)
Quarter: 2006Q4

REPORT INFORMATION
  Report Type: 
  Country: None (occurrence: None)
  Receive Date: 20061018
  Receipt Date: 20061011
  Transmission Date: 20070319
  Serious: Yes (Life-Threatening)
  Sender: FDA-Public Use
  Company Number: HQWYE316410AUG06

PATIENT
  Sex: Male

DRUGS (2)
  1. EFFEXOR XR (VENLAFXINE HYDROCHLORIDE, CAPSULE, EXTENDED RELEASE) [Suspect]
     Indication: DEPRESSION
     Dosage: ^37.5/75^ MG CAPSULES DAILY, ORAL
     Route: 048
     Dates: start: 20060701, end: 20060101
  2. HALLUCINATION (LLT: HALLUCINATION) [Concomitant]

REACTIONS (4)
  - DRUG WITHDRAWAL SYNDROME [None]
  - FORMICATION [None]
  - HALLUCINATION [None]
  - SUICIDAL IDEATION [None]
